FAERS Safety Report 24996631 (Version 1)
Quarter: 2025Q1

REPORT INFORMATION
  Report Type: Spontaneous
  Country: CA (occurrence: CA)
  Receive Date: 20250221
  Receipt Date: 20250221
  Transmission Date: 20250408
  Serious: Yes (Hospitalization)
  Sender: UCB
  Company Number: CA-UCBSA-2025009571

PATIENT
  Age: 15 Year
  Sex: Male
  Weight: 80 kg

DRUGS (21)
  1. LEVETIRACETAM [Suspect]
     Active Substance: LEVETIRACETAM
     Indication: Prophylaxis
     Dosage: 750 MILLIGRAM, 2X/DAY (BID)
     Route: 048
  2. DEXAMETHASONE [Suspect]
     Active Substance: DEXAMETHASONE
     Indication: Product used for unknown indication
     Dosage: 3 MILLIGRAM, 3X/DAY (TID)
     Route: 042
  3. DEXAMETHASONE [Suspect]
     Active Substance: DEXAMETHASONE
     Indication: Product used for unknown indication
     Dosage: 2 MILLIGRAM, 3X/DAY (TID)
     Route: 048
  4. ACETAMINOPHEN [Concomitant]
     Active Substance: ACETAMINOPHEN
     Indication: Product used for unknown indication
  5. AMOXICILLIN\CLAVULANATE POTASSIUM [Concomitant]
     Active Substance: AMOXICILLIN\CLAVULANATE POTASSIUM
     Indication: Product used for unknown indication
  6. CEFAZOLIN [Concomitant]
     Active Substance: CEFAZOLIN
     Indication: Product used for unknown indication
  7. CEFOTAXIME [Concomitant]
     Active Substance: CEFOTAXIME SODIUM
     Indication: Product used for unknown indication
  8. CLINDAMYCIN [Concomitant]
     Active Substance: CLINDAMYCIN
     Indication: Product used for unknown indication
  9. DEXMEDETOMIDINE [Concomitant]
     Active Substance: DEXMEDETOMIDINE
     Indication: Product used for unknown indication
  10. FAMOTIDINE [Concomitant]
     Active Substance: FAMOTIDINE
     Indication: Product used for unknown indication
  11. FENTANYL [Concomitant]
     Active Substance: FENTANYL
     Indication: Product used for unknown indication
  12. FUROSEMIDE [Concomitant]
     Active Substance: FUROSEMIDE
     Indication: Product used for unknown indication
  13. KETAMINE [Concomitant]
     Active Substance: KETAMINE
     Indication: Product used for unknown indication
  14. LEVULAN KERASTICK [Concomitant]
     Active Substance: AMINOLEVULINIC ACID HYDROCHLORIDE
     Indication: Product used for unknown indication
  15. MELATONIN [Concomitant]
     Active Substance: MELATONIN
     Indication: Product used for unknown indication
  16. MIDAZOLAM [Concomitant]
     Active Substance: MIDAZOLAM
     Indication: Product used for unknown indication
  17. MORPHINE [Concomitant]
     Active Substance: MORPHINE
     Indication: Product used for unknown indication
  18. NOREPINEPHRINE [Concomitant]
     Active Substance: NOREPINEPHRINE
     Indication: Product used for unknown indication
  19. POLYETHYLENE GLYCOLS [Concomitant]
     Active Substance: POLYETHYLENE GLYCOLS
     Indication: Product used for unknown indication
  20. PROPOFOL [Concomitant]
     Active Substance: PROPOFOL
     Indication: Product used for unknown indication
  21. ROCURONIUM [Concomitant]
     Active Substance: ROCURONIUM BROMIDE
     Indication: Product used for unknown indication

REACTIONS (6)
  - Rash maculo-papular [Recovered/Resolved]
  - Dermatitis acneiform [Recovered/Resolved]
  - Rash erythematous [Recovered/Resolved]
  - Rash morbilliform [Recovered/Resolved]
  - Type IV hypersensitivity reaction [Recovered/Resolved]
  - Off label use [Unknown]
